FAERS Safety Report 7776132-7 (Version None)
Quarter: 2011Q3

REPORT INFORMATION
  Report Type: 
  Country: None (occurrence: None)
  Receive Date: 20110925
  Receipt Date: 20110915
  Transmission Date: 20111222
  Serious: Yes (Other)
  Sender: FDA-Public Use
  Company Number: AU-AMGEN-AUSSP2010012085

PATIENT
  Sex: Male
  Weight: 3.78 kg

DRUGS (2)
  1. ENBREL [Suspect]
     Dosage: 50 MG, 2X/WEEK
     Route: 064
     Dates: start: 20101109, end: 20101207
  2. CELESTONE TAB [Concomitant]
     Indication: PSORIASIS
     Dosage: UNK, ONCE/DAY OR AS NEEDED
     Route: 061
     Dates: start: 20100928

REACTIONS (2)
  - FOETAL HEART RATE DECELERATION [None]
  - MATERNAL EXPOSURE DURING PREGNANCY [None]
